FAERS Safety Report 10195474 (Version 1)
Quarter: 2014Q2

REPORT INFORMATION
  Report Type: Spontaneous
  Country: US (occurrence: US)
  Receive Date: 20140526
  Receipt Date: 20140526
  Transmission Date: 20141212
  Serious: No
  Sender: FDA-Public Use
  Company Number: US-BAYER-2014-067767

PATIENT
  Age: 55 Year
  Sex: Female
  Weight: 63 kg

DRUGS (5)
  1. ALEVE CAPLET [Suspect]
     Indication: ANALGESIC THERAPY
     Dosage: UNK
     Route: 048
  2. BAYER EXTRA STRENGTH ASPIRIN [Suspect]
     Indication: PAIN
     Dosage: 2 DF, PRN
     Route: 048
     Dates: start: 201404, end: 20140504
  3. BAYER EXTRA STRENGTH ASPIRIN [Suspect]
     Indication: ANTICOAGULANT THERAPY
  4. BAYER ADVANCED ASPIRIN EXTRA STRENGTH [Suspect]
     Indication: PAIN
     Dosage: 2 DF, UNK
     Route: 048
     Dates: start: 2012
  5. BAYER ADVANCED ASPIRIN EXTRA STRENGTH [Suspect]
     Indication: ANTICOAGULANT THERAPY

REACTIONS (4)
  - Migraine [None]
  - Drug ineffective [None]
  - Intentional product misuse [None]
  - Intentional product misuse [None]
